FAERS Safety Report 6368793-4 (Version None)
Quarter: 2009Q3

REPORT INFORMATION
  Report Type: 
  Country: None (occurrence: None)
  Receive Date: 20090922
  Receipt Date: 20090915
  Transmission Date: 20100115
  Serious: Yes (Life-Threatening, Hospitalization)
  Sender: FDA-Public Use
  Company Number: FR-SANOFI-SYNTHELABO-A02200902215

PATIENT
  Sex: Male

DRUGS (4)
  1. COVERSYL [Concomitant]
     Indication: DRUG USE FOR UNKNOWN INDICATION
     Dosage: UNK
     Route: 048
  2. TAHOR [Concomitant]
     Indication: DRUG USE FOR UNKNOWN INDICATION
     Dosage: UNK
     Route: 048
  3. COUMADIN [Interacting]
     Indication: CARDIOVASCULAR DISORDER
     Dosage: UNK
     Route: 048
     Dates: end: 20090617
  4. PLAVIX [Suspect]
     Indication: CARDIOVASCULAR DISORDER
     Route: 048
     Dates: end: 20090617

REACTIONS (7)
  - ANAEMIA [None]
  - DRUG INTERACTION [None]
  - INTERNATIONAL NORMALISED RATIO INCREASED [None]
  - MELAENA [None]
  - OESOPHAGEAL HAEMORRHAGE [None]
  - OESOPHAGEAL ULCER [None]
  - SHOCK HAEMORRHAGIC [None]
